FAERS Safety Report 5832786-3 (Version None)
Quarter: 2008Q3

REPORT INFORMATION
  Report Type: 
  Country: None (occurrence: None)
  Receive Date: 20080804
  Receipt Date: 20080723
  Transmission Date: 20090109
  Serious: Yes (Hospitalization)
  Sender: FDA-Public Use
  Company Number: US-PFIZER INC-2008063766

PATIENT
  Sex: Male
  Weight: 103.9 kg

DRUGS (5)
  1. CHANTIX [Suspect]
  2. CYANOCOBALAMIN [Concomitant]
  3. FOLIC ACID [Concomitant]
  4. ALLOPURINOL [Concomitant]
  5. INDOMETHACIN [Concomitant]

REACTIONS (3)
  - CHEST DISCOMFORT [None]
  - MALAISE [None]
  - NAUSEA [None]
